FAERS Safety Report 23976186 (Version 1)
Quarter: 2024Q2

REPORT INFORMATION
  Report Type: Report from Study
  Country: US (occurrence: None)
  Receive Date: 20240614
  Receipt Date: 20240614
  Transmission Date: 20240716
  Serious: Yes (Other)
  Sender: FDA-Public Use
  Company Number: 2024A133513

PATIENT
  Sex: Male

DRUGS (1)
  1. CALQUENCE [Suspect]
     Active Substance: ACALABRUTINIB
     Route: 048

REACTIONS (6)
  - Neoplasm [Unknown]
  - Cyst [Unknown]
  - Disease progression [Unknown]
  - Pneumonia [Unknown]
  - Nausea [Unknown]
  - Fatigue [Unknown]
